FAERS Safety Report 5229747-4 (Version None)
Quarter: 2007Q1

REPORT INFORMATION
  Report Type: 
  Country: None (occurrence: None)
  Receive Date: 20070206
  Receipt Date: 20070124
  Transmission Date: 20070707
  Serious: Yes (Hospitalization, Other)
  Sender: FDA-Public Use
  Company Number: DE-PFIZER INC-2006031203

PATIENT
  Sex: Male
  Weight: 75 kg

DRUGS (5)
  1. SU-011,248 [Suspect]
     Indication: METASTATIC RENAL CELL CARCINOMA
     Route: 048
  2. GASTROSIL [Concomitant]
     Dosage: TEXT:UNKNOWN-FREQ:UNKNOWN
     Route: 048
  3. PANTOZOL [Concomitant]
     Dosage: TEXT:UNKNOWN-FREQ:UNKNOWN
     Route: 048
  4. NORVASC [Concomitant]
     Dosage: TEXT:UNKNOWN-FREQ:UNKNOWN
     Route: 048
  5. METOHEXAL [Concomitant]
     Dosage: TEXT:UNKNOWN-FREQ:UNKNOWN
     Route: 048

REACTIONS (3)
  - DIZZINESS [None]
  - PAPILLOEDEMA [None]
  - VISION BLURRED [None]
